FAERS Safety Report 5826608-4 (Version None)
Quarter: 2008Q3

REPORT INFORMATION
  Report Type: 
  Country: None (occurrence: None)
  Receive Date: 20080730
  Receipt Date: 20080722
  Transmission Date: 20090109
  Serious: Yes (Life-Threatening, Hospitalization)
  Sender: FDA-Public Use
  Company Number: FR-WYE-H04976708

PATIENT
  Sex: Male

DRUGS (9)
  1. PANTOPRAZOLE SODIUM [Suspect]
     Indication: PROPHYLAXIS
     Route: 048
  2. METHOTREXATE [Suspect]
     Indication: RHEUMATOID ARTHRITIS
     Route: 048
     Dates: start: 20040101, end: 20080412
  3. CORTANCYL [Concomitant]
     Indication: RHEUMATOID ARTHRITIS
     Dosage: 3 MG - FREQUENCY UNSPECIFIED
     Route: 048
  4. PAROXETINE HCL [Concomitant]
     Indication: DEPRESSION
     Route: 048
  5. BISOPROLOL FUMARATE [Concomitant]
     Indication: CARDIAC DISORDER
     Dosage: 2.5 MG - FREQUENCY UNSPECIFIED
     Route: 048
     Dates: start: 20080331
  6. RAMIPRIL [Concomitant]
     Indication: CARDIAC DISORDER
     Route: 048
     Dates: start: 20080320, end: 20080412
  7. ATHYMIL [Concomitant]
     Indication: DEPRESSION
     Route: 048
     Dates: end: 20080412
  8. ASPIRIN [Suspect]
     Indication: MYOCARDIAL ISCHAEMIA
     Route: 048
  9. LASIX [Concomitant]
     Indication: CARDIAC DISORDER
     Dosage: 20 MG - FREQUENCY UNSPECIFIED
     Route: 048

REACTIONS (4)
  - DERMATITIS BULLOUS [None]
  - PANCYTOPENIA [None]
  - PURPURA [None]
  - SEPSIS [None]
